FAERS Safety Report 4344550-5 (Version None)
Quarter: 2004Q2

REPORT INFORMATION
  Report Type: 
  Country: None (occurrence: None)
  Receive Date: 20040422
  Receipt Date: 20040414
  Transmission Date: 20050107
  Serious: Yes (Hospitalization)
  Sender: FDA-Public Use
  Company Number: HR-MERCK-0404HUN00011

PATIENT
  Age: 69 Year
  Sex: Male

DRUGS (1)
  1. PRINZIDE [Suspect]
     Indication: HYPERTENSION
     Route: 048
     Dates: start: 20011023, end: 20011111

REACTIONS (1)
  - CEREBROVASCULAR DISORDER [None]
